FAERS Safety Report 11572883 (Version 2)
Quarter: 2015Q4

REPORT INFORMATION
  Report Type: Spontaneous
  Country: US (occurrence: US)
  Receive Date: 20150929
  Receipt Date: 20151005
  Transmission Date: 20160304
  Serious: No
  Sender: FDA-Public Use
  Company Number: US-PFIZER INC-2015325647

PATIENT
  Age: 79 Year
  Sex: Male
  Weight: 61 kg

DRUGS (10)
  1. ASPIRIN. [Concomitant]
     Active Substance: ASPIRIN
     Indication: CARDIAC DISORDER
     Dosage: 81 MG, 1X/DAY
  2. CHANTIX [Suspect]
     Active Substance: VARENICLINE TARTRATE
     Indication: SMOKING CESSATION THERAPY
     Dosage: UNK, 2X/DAY (MORNING, EVENING)
  3. CHANTIX [Interacting]
     Active Substance: VARENICLINE TARTRATE
     Dosage: 1 MG, DAILY (0.5MG, TWO TABLETS DAILY)
     Dates: end: 20150925
  4. LASIX [Interacting]
     Active Substance: FUROSEMIDE
     Indication: FLUID OVERLOAD
     Dosage: 40 MG, 2X/DAY
  5. ATORVASTATIN [Concomitant]
     Active Substance: ATORVASTATIN
     Dosage: 80 MG, 1X/DAY (AT NIGHT)
  6. CHANTIX [Interacting]
     Active Substance: VARENICLINE TARTRATE
     Dosage: UNK, 1X/DAY
  7. PAROXETINE [Interacting]
     Active Substance: PAROXETINE\PAROXETINE HYDROCHLORIDE
     Indication: ANXIETY DISORDER
     Dosage: 30 MG, 1X/DAY
  8. VALSARTAN. [Interacting]
     Active Substance: VALSARTAN
     Indication: CARDIAC DISORDER
     Dosage: 80 MG, 1X/DAY
  9. KLOR-CON [Interacting]
     Active Substance: POTASSIUM CHLORIDE
     Indication: ELECTROLYTE IMBALANCE
     Dosage: 20 MG, UNK
  10. CARVEDILOL. [Interacting]
     Active Substance: CARVEDILOL
     Indication: CARDIAC DISORDER
     Dosage: 12.5 MG, 2X/DAY

REACTIONS (4)
  - Drug interaction [Unknown]
  - Expired product administered [Recovered/Resolved]
  - Vomiting [Recovered/Resolved]
  - Nausea [Recovered/Resolved]

NARRATIVE: CASE EVENT DATE: 20150925
